FAERS Safety Report 20480401 (Version 2)
Quarter: 2022Q2

REPORT INFORMATION
  Report Type: Spontaneous
  Country: US (occurrence: US)
  Receive Date: 20220216
  Receipt Date: 20220513
  Transmission Date: 20220721
  Serious: No
  Sender: FDA-Public Use
  Company Number: US-PFIZER INC-202101630730

PATIENT
  Age: 58 Year
  Sex: Female

DRUGS (1)
  1. XELJANZ [Suspect]
     Active Substance: TOFACITINIB CITRATE
     Indication: Alopecia areata
     Dosage: 5 MG, 2X/DAY (TAKE 1 TABLET BY MOUTH 2 TIMES DAILY) (60 TABLETS)
     Route: 048

REACTIONS (3)
  - Off label use [Unknown]
  - Alopecia [Unknown]
  - Stress [Unknown]
